FAERS Safety Report 4732319-9 (Version None)
Quarter: 2005Q3

REPORT INFORMATION
  Report Type: 
  Country: None (occurrence: None)
  Receive Date: 20050726
  Receipt Date: 20041206
  Transmission Date: 20060218
  Serious: Yes (Hospitalization)
  Sender: FDA-Public Use
  Company Number: 05USA0005

PATIENT

DRUGS (2)
  1. AGGRASTAT [Suspect]
     Indication: ACUTE CORONARY SYNDROME
     Dates: start: 20041203, end: 20041203
  2. PLAVIX [Concomitant]

REACTIONS (1)
  - PLATELET COUNT DECREASED [None]
